FAERS Safety Report 18587173 (Version 1)
Quarter: 2020Q4

REPORT INFORMATION
  Report Type: Spontaneous
  Country: US (occurrence: US)
  Receive Date: 20201207
  Receipt Date: 20201207
  Transmission Date: 20210114
  Serious: Yes (Other)
  Sender: FDA-Public Use
  Company Number: US-ROCHE-2592006

PATIENT
  Sex: Female

DRUGS (1)
  1. VALIUM [Suspect]
     Active Substance: DIAZEPAM
     Indication: DEPRESSION
     Route: 065

REACTIONS (4)
  - Maternal exposure during pregnancy [Unknown]
  - Pain [Unknown]
  - Intentional product use issue [Unknown]
  - Off label use [Unknown]
